FAERS Safety Report 4323044-7 (Version None)
Quarter: 2004Q1

REPORT INFORMATION
  Report Type: 
  Country: None (occurrence: None)
  Receive Date: 20040322
  Receipt Date: 20040309
  Transmission Date: 20041129
  Serious: Yes (Other)
  Sender: FDA-Public Use
  Company Number: 205042

PATIENT
  Age: 48 Year
  Sex: Female
  Weight: 71.2 kg

DRUGS (10)
  1. XOLAIR [Suspect]
     Indication: ASTHMA
     Dosage: 300 MG, Q4W, SUBCUTANEOUS
     Route: 058
     Dates: start: 20040224, end: 20040224
  2. ZYRTEC [Concomitant]
  3. SINGULAIR [Concomitant]
  4. ADVAIR DISKUS [Concomitant]
  5. ALBUTEROL INHALER (ALBUTEROL, ALBUTEROL SULFATE) [Concomitant]
  6. NASONEX [Concomitant]
  7. ALLEGRA [Concomitant]
  8. MERIDIA [Concomitant]
  9. PATANOL [Concomitant]
  10. ASTELIN [Concomitant]

REACTIONS (7)
  - COUGH [None]
  - DYSPHAGIA [None]
  - HEADACHE [None]
  - PRURITUS [None]
  - RASH [None]
  - RESPIRATORY DISORDER [None]
  - URTICARIA [None]
